FAERS Safety Report 8573474-2 (Version None)
Quarter: 2012Q3

REPORT INFORMATION
  Report Type: 
  Country: None (occurrence: None)
  Receive Date: 20120806
  Receipt Date: 20120801
  Transmission Date: 20120928
  Serious: Yes (Death, Other)
  Sender: FDA-Public Use
  Company Number: VE-ELI_LILLY_AND_COMPANY-VE201207009323

PATIENT
  Age: 63 Year
  Sex: Male
  Weight: 69 kg

DRUGS (2)
  1. EFFIENT [Suspect]
     Dosage: 60 MG, UNKNOWN
     Route: 065
     Dates: start: 20120723
  2. EFFIENT [Suspect]
     Dosage: 10 MG, UNKNOWN
     Route: 065

REACTIONS (3)
  - RENAL FAILURE [None]
  - AORTIC STENOSIS [None]
  - PURPURA [None]
